FAERS Safety Report 24363728 (Version 6)
Quarter: 2025Q1

REPORT INFORMATION
  Report Type: Spontaneous
  Country: US (occurrence: US)
  Receive Date: 20240925
  Receipt Date: 20250318
  Transmission Date: 20250409
  Serious: No
  Sender: DR REDDYS
  Company Number: US-DRL-USA-SPO/USA/24/0013788

PATIENT
  Age: 54 Year
  Sex: Female

DRUGS (1)
  1. LENALIDOMIDE [Suspect]
     Active Substance: LENALIDOMIDE
     Indication: Plasma cell myeloma
     Route: 065
     Dates: start: 20230919

REACTIONS (3)
  - Human chorionic gonadotropin increased [Unknown]
  - Treatment noncompliance [Unknown]
  - Product availability issue [Unknown]

NARRATIVE: CASE EVENT DATE: 20240910
